FAERS Safety Report 20887191 (Version 5)
Quarter: 2023Q1

REPORT INFORMATION
  Report Type: Spontaneous
  Country: US (occurrence: US)
  Receive Date: 20220528
  Receipt Date: 20230221
  Transmission Date: 20230418
  Serious: Yes (Other)
  Sender: FDA-Public Use
  Company Number: US-BRISTOL-MYERS SQUIBB COMPANY-2022-044667

PATIENT
  Age: 71 Year
  Sex: Male
  Weight: 174 kg

DRUGS (2)
  1. REVLIMID [Suspect]
     Active Substance: LENALIDOMIDE
     Indication: Plasma cell myeloma
     Dosage: TAKE 1 CAPSULE (10 MG TOTAL) BY MOUTH DAILY FOR 21 DAYS OF 28-DAY CYCLE
     Route: 048
     Dates: start: 20200512
  2. REVLIMID [Suspect]
     Active Substance: LENALIDOMIDE
     Dosage: TAKE 1 CAPSULE (10 MG TOTAL) BY MOUTH DAILY FOR 21 DAYS OF 28-DAY CYCLE
     Route: 048
     Dates: start: 20201002

REACTIONS (4)
  - Pneumonia fungal [Unknown]
  - Clostridium difficile infection [Unknown]
  - Blood pressure fluctuation [Recovered/Resolved]
  - Fungal infection [Recovered/Resolved]
